FAERS Safety Report 10566843 (Version 4)
Quarter: 2015Q2

REPORT INFORMATION
  Report Type: Report from Study
  Country: JP (occurrence: JP)
  Receive Date: 20141105
  Receipt Date: 20150505
  Transmission Date: 20150821
  Serious: Yes (Hospitalization)
  Sender: FDA-Public Use
  Company Number: JP-SPECTRUM PHARMACEUTICALS, INC.-14-Z-JP-00161

PATIENT
  Age: 66 Year
  Sex: Female

DRUGS (13)
  1. VINCRISTINE [Suspect]
     Active Substance: VINCRISTINE
     Indication: CHEMOTHERAPY
     Dosage: UNK, UNKNOWN
     Route: 065
     Dates: start: 200802, end: 200810
  2. PREDNISOLONE. [Suspect]
     Active Substance: PREDNISOLONE
     Indication: CHEMOTHERAPY
     Dosage: UNK, UNKNOWN
     Route: 065
     Dates: start: 200802, end: 200810
  3. IFOSFAMIDE. [Suspect]
     Active Substance: IFOSFAMIDE
     Indication: CHEMOTHERAPY
     Dosage: UNK, UNKNOWN
     Route: 065
     Dates: start: 201002, end: 201005
  4. ETOPOSIDE. [Suspect]
     Active Substance: ETOPOSIDE
     Indication: CHEMOTHERAPY
     Dosage: UNK, UNKNOWN
     Route: 065
     Dates: start: 201002, end: 201005
  5. ZEVALIN [Suspect]
     Active Substance: IBRITUMOMAB TIUXETAN
     Indication: NON-HODGKIN^S LYMPHOMA
     Dosage: UNK, SINGLE
     Route: 042
     Dates: start: 20081217, end: 20081217
  6. CYCLOPHOSPHAMIDE. [Suspect]
     Active Substance: CYCLOPHOSPHAMIDE
     Indication: CHEMOTHERAPY
     Dosage: UNK, UNKNOWN
     Route: 065
     Dates: start: 200802, end: 200810
  7. CARBOPLATIN. [Suspect]
     Active Substance: CARBOPLATIN
     Indication: CHEMOTHERAPY
     Dosage: UNK, UNKNOWN
     Route: 065
     Dates: start: 201002, end: 201005
  8. ZEVALIN [Suspect]
     Active Substance: IBRITUMOMAB TIUXETAN
     Dosage: UNK, SINGLE
     Route: 042
     Dates: start: 20081210, end: 20081210
  9. RITUXIMAB [Suspect]
     Active Substance: RITUXIMAB
     Indication: CHEMOTHERAPY
     Dosage: UNK, SINGLE
     Route: 065
     Dates: start: 201005, end: 201008
  10. RITUXIMAB [Suspect]
     Active Substance: RITUXIMAB
     Dosage: UNK, SINGLE
     Route: 065
     Dates: start: 200802, end: 200810
  11. RITUXIMAB [Suspect]
     Active Substance: RITUXIMAB
     Dosage: UNK, SINGLE
     Route: 065
     Dates: start: 201002, end: 201005
  12. BENDAMUSTINE [Suspect]
     Active Substance: BENDAMUSTINE
     Indication: CHEMOTHERAPY
     Dosage: UNK, UNKNOWN
     Route: 065
     Dates: start: 201110, end: 201205
  13. DOXORUBICIN [Suspect]
     Active Substance: DOXORUBICIN
     Indication: CHEMOTHERAPY
     Dosage: UNK, UNKNOWN
     Route: 065
     Dates: start: 200802, end: 200810

REACTIONS (2)
  - Myelodysplastic syndrome [Recovered/Resolved]
  - Breast cancer [Recovered/Resolved]

NARRATIVE: CASE EVENT DATE: 20140207
